FAERS Safety Report 21785404 (Version 4)
Quarter: 2023Q1

REPORT INFORMATION
  Report Type: Report from Study
  Country: FR (occurrence: FR)
  Receive Date: 20221227
  Receipt Date: 20230301
  Transmission Date: 20230417
  Serious: Yes (Death, Hospitalization, Other)
  Sender: FDA-Public Use
  Company Number: FR-Vifor Pharma-VIT-2022-08789

PATIENT
  Age: 78 Year
  Sex: Female
  Weight: 80 kg

DRUGS (11)
  1. DIFELIKEFALIN [Suspect]
     Active Substance: DIFELIKEFALIN
     Indication: Uraemic pruritus
     Dosage: 40 MICROGRAM, UNK
     Route: 065
     Dates: start: 20220927, end: 20221008
  2. ACETAMINOPHEN\CODEINE PHOSPHATE [Concomitant]
     Active Substance: ACETAMINOPHEN\CODEINE PHOSPHATE
     Dosage: 500/30 MG X 2/5
     Dates: start: 20221006, end: 20221008
  3. ASPIRIN\CLOPIDOGREL [Concomitant]
     Active Substance: ASPIRIN\CLOPIDOGREL
     Indication: Myocardial ischaemia
     Dosage: 75/75 MG/5
     Dates: start: 202209, end: 20221012
  4. LEVOTHYROXINE [Concomitant]
     Active Substance: LEVOTHYROXINE
     Indication: Hyperthyroidism
     Dosage: 100 MG/5, SCORED TABLET
     Dates: start: 2020
  5. PANTOPRAZOLE [Concomitant]
     Active Substance: PANTOPRAZOLE
     Indication: Gastrointestinal disorder prophylaxis
     Dosage: 20 MG/5
  6. GABAPENTINE ALTER [Concomitant]
     Indication: Pruritus
     Dates: start: 2020, end: 20221012
  7. GABAPENTINE ALTER [Concomitant]
  8. ATORVASTATIN [Concomitant]
     Active Substance: ATORVASTATIN
     Indication: Blood cholesterol
     Dosage: 40 MG IN THE EVENING
     Dates: start: 2020
  9. BISOPROLOL FUMARATE [Concomitant]
     Active Substance: BISOPROLOL FUMARATE
     Indication: Myocardial ischaemia
     Dosage: 35 MG X 2/5
     Dates: start: 2020
  10. BISOPROLOL FUMARATE [Concomitant]
     Active Substance: BISOPROLOL FUMARATE
     Dosage: 35 MG X 2/5
  11. BISOPROLOL FUMARATE [Concomitant]
     Active Substance: BISOPROLOL FUMARATE

REACTIONS (3)
  - Subdural haematoma [Fatal]
  - Hypersomnia [Unknown]
  - Coma [Unknown]

NARRATIVE: CASE EVENT DATE: 20221001
